APPROVED DRUG PRODUCT: PMB 400
Active Ingredient: ESTROGENS, CONJUGATED; MEPROBAMATE
Strength: 0.45MG;400MG
Dosage Form/Route: TABLET;ORAL
Application: N010971 | Product #003
Applicant: WYETH AYERST LABORATORIES
Approved: Approved Prior to Jan 1, 1982 | RLD: No | RS: No | Type: DISCN